FAERS Safety Report 9149760 (Version 2)
Quarter: 2013Q2

REPORT INFORMATION
  Report Type: Spontaneous
  Country: US (occurrence: US)
  Receive Date: 20130308
  Receipt Date: 20130529
  Transmission Date: 20140414
  Serious: Yes (Other)
  Sender: FDA-Public Use
  Company Number: US-ABBOTT-13P-163-1057358-00

PATIENT
  Sex: Female
  Weight: 49.94 kg

DRUGS (2)
  1. LUPRON DEPOT [Suspect]
     Indication: ENDOMETRIOSIS
     Dates: start: 201206, end: 201210
  2. LUPRON DEPOT [Suspect]
     Indication: ENDOMETRIOSIS

REACTIONS (9)
  - Cyst [Recovered/Resolved]
  - Drug ineffective [Recovered/Resolved]
  - Insomnia [Recovered/Resolved]
  - Hot flush [Recovered/Resolved]
  - Irritability [Recovered/Resolved]
  - Off label use [Unknown]
  - Mood swings [Unknown]
  - Personality change [Unknown]
  - Pain [Unknown]
